FAERS Safety Report 6847853-5 (Version None)
Quarter: 2010Q3

REPORT INFORMATION
  Report Type: 
  Country: None (occurrence: None)
  Receive Date: 20100716
  Receipt Date: 20100706
  Transmission Date: 20110219
  Serious: Yes (Hospitalization, Other)
  Sender: FDA-Public Use
  Company Number: GB-BRISTOL-MYERS SQUIBB COMPANY-15180797

PATIENT
  Age: 50 Year
  Sex: Male

DRUGS (4)
  1. CYCLOPHOSPHAMIDE [Suspect]
     Indication: PLASMABLASTIC LYMPHOMA
  2. DOXORUBICIN HCL [Suspect]
     Indication: PLASMABLASTIC LYMPHOMA
  3. VINCRISTINE SULFATE [Suspect]
     Indication: PLASMABLASTIC LYMPHOMA
  4. PREDNISOLONE [Suspect]
     Indication: PLASMABLASTIC LYMPHOMA

REACTIONS (5)
  - CYTOMEGALOVIRUS CHORIORETINITIS [None]
  - CYTOMEGALOVIRUS INFECTION [None]
  - CYTOMEGALOVIRUS MYELOMENINGORADICULITIS [None]
  - FEBRILE NEUTROPENIA [None]
  - NEUTROPENIC SEPSIS [None]
